FAERS Safety Report 25894020 (Version 1)
Quarter: 2025Q4

REPORT INFORMATION
  Report Type: Spontaneous
  Country: US (occurrence: US)
  Receive Date: 20251008
  Receipt Date: 20251008
  Transmission Date: 20260117
  Serious: Yes (Other)
  Sender: COOPERSURGICAL
  Company Number: US-COOPERSURGICAL, INC.-2025CPS007109

PATIENT
  Age: 23 Year
  Sex: Female
  Weight: 62.132 kg

DRUGS (6)
  1. PARAGARD T 380A [Suspect]
     Active Substance: COPPER
     Indication: Contraception
     Dosage: UNK
     Route: 015
     Dates: start: 20230425, end: 20230510
  2. LAMOTRIGINE [Concomitant]
     Active Substance: LAMOTRIGINE
     Dosage: UNK
     Dates: start: 20201201
  3. FOCALIN XR [Concomitant]
     Active Substance: DEXMETHYLPHENIDATE HYDROCHLORIDE
     Dosage: UNK
     Dates: start: 20201201
  4. TRAZODONE [Concomitant]
     Active Substance: TRAZODONE HYDROCHLORIDE
     Dosage: UNK
     Dates: start: 20201201
  5. PROZAC [Concomitant]
     Active Substance: FLUOXETINE HYDROCHLORIDE
     Dosage: UNK
     Dates: start: 20201201
  6. TOPAMAX [Concomitant]
     Active Substance: TOPIRAMATE
     Dosage: UNK
     Dates: start: 20201201

REACTIONS (15)
  - Reproductive complication associated with device [Not Recovered/Not Resolved]
  - Embedded device [Recovered/Resolved]
  - Uterine perforation [Unknown]
  - Anxiety [Not Recovered/Not Resolved]
  - Emotional distress [Not Recovered/Not Resolved]
  - Complication associated with device [Recovered/Resolved]
  - Procedural pain [Recovered/Resolved]
  - Device dislocation [Recovered/Resolved]
  - Abnormal uterine bleeding [Not Recovered/Not Resolved]
  - Pain [Unknown]
  - Discomfort [Unknown]
  - Menstruation irregular [Not Recovered/Not Resolved]
  - Abdominal pain lower [Unknown]
  - Unevaluable event [Unknown]
  - Infection [Unknown]

NARRATIVE: CASE EVENT DATE: 20230501
